FAERS Safety Report 8506398-7 (Version None)
Quarter: 2012Q3

REPORT INFORMATION
  Report Type: 
  Country: None (occurrence: None)
  Receive Date: 20120712
  Receipt Date: 20111130
  Transmission Date: 20120928
  Serious: Yes (Other)
  Sender: FDA-Public Use
  Company Number: ES-ROCHE-686096

PATIENT
  Sex: Female
  Weight: 74 kg

DRUGS (5)
  1. ATENOLOL [Concomitant]
     Indication: HYPERTENSION
     Route: 048
     Dates: start: 20040101
  2. AVASTIN [Suspect]
     Indication: LUNG NEOPLASM MALIGNANT
     Route: 042
     Dates: start: 20091210
  3. CISPLATIN [Suspect]
     Indication: LUNG NEOPLASM MALIGNANT
     Dosage: 5 AUC
     Route: 042
     Dates: start: 20091210
  4. FUROSEMIDE [Concomitant]
     Dates: start: 20100209
  5. PEMETREXED DISODIUM [Suspect]
     Indication: LUNG NEOPLASM MALIGNANT
     Route: 042
     Dates: start: 20091210

REACTIONS (1)
  - VITREOUS DETACHMENT [None]
